FAERS Safety Report 10227302 (Version 1)
Quarter: 2014Q2

REPORT INFORMATION
  Report Type: Spontaneous
  Country: ES (occurrence: None)
  Receive Date: 20140606
  Receipt Date: 20140606
  Transmission Date: 20141212
  Serious: Yes (Other)
  Sender: FDA-Public Use
  Company Number: TPU2014-00135

PATIENT
  Age: 79 Year
  Sex: Female

DRUGS (7)
  1. VERSATIS [Suspect]
     Indication: PRODUCT USED FOR UNKNOWN INDICATION
     Route: 061
     Dates: start: 20140421, end: 20140422
  2. ENALAPRIL (ENALAPRIL) [Concomitant]
  3. SIMVASTATINE [Concomitant]
  4. LANSOPRAZOL [Concomitant]
  5. ADIRO [Concomitant]
  6. CYMBALTA [Concomitant]
  7. NEURONTIN (GABAPENTIN) [Concomitant]

REACTIONS (2)
  - Amnesia [None]
  - Feeling abnormal [None]
